FAERS Safety Report 5124129-8 (Version None)
Quarter: 2006Q4

REPORT INFORMATION
  Report Type: 
  Country: None (occurrence: None)
  Receive Date: 20061010
  Receipt Date: 20060316
  Transmission Date: 20070319
  Serious: No
  Sender: FDA-Public Use
  Company Number: US-BRISTOL-MYERS SQUIBB COMPANY-13317417

PATIENT
  Age: 71 Year
  Sex: Male
  Weight: 82 kg

DRUGS (7)
  1. AVAPRO [Suspect]
     Indication: HYPERTENSION
     Route: 048
  2. AVAPRO [Suspect]
     Indication: HYPERTENSION
  3. HYDROCHLOROTHIAZDE TAB [Concomitant]
  4. ATENOLOL [Concomitant]
  5. AMARYL [Concomitant]
  6. LIPITOR [Concomitant]
  7. ZETIA [Concomitant]
     Dates: start: 20030101

REACTIONS (1)
  - BLOOD PRESSURE INCREASED [None]
